FAERS Safety Report 13472494 (Version 1)
Quarter: 2017Q2

REPORT INFORMATION
  Report Type: Spontaneous
  Country: US (occurrence: US)
  Receive Date: 20170423
  Receipt Date: 20170423
  Transmission Date: 20170830
  Serious: Yes (Other)
  Sender: FDA-Public Use
  Company Number: None

PATIENT
  Age: 63 Year
  Sex: Female
  Weight: 73.8 kg

DRUGS (29)
  1. CRESTOR [Concomitant]
     Active Substance: ROSUVASTATIN CALCIUM
  2. ANAPHYLAXIS /SEVERE ALLERGY **EPI-PEN / AUVI-Q EPINEPHRINE INJECTOR [Concomitant]
  3. DULCOLAX DOCUSATE SODIUM [Concomitant]
  4. ASPIRIN. [Concomitant]
     Active Substance: ASPIRIN
  5. POTASSIUM/MAGNESIUM [Concomitant]
  6. BENADRYL [Concomitant]
     Active Substance: DIPHENHYDRAMINE HYDROCHLORIDE
  7. PREDNISONE. [Concomitant]
     Active Substance: PREDNISONE
  8. FLEXERIL [Concomitant]
     Active Substance: CYCLOBENZAPRINE HYDROCHLORIDE
  9. ALVESCO [Concomitant]
     Active Substance: CICLESONIDE
  10. BUTALBITAL/ASA/CAFF CODEINE [Concomitant]
  11. ZANTAC [Concomitant]
     Active Substance: RANITIDINE HYDROCHLORIDE
  12. VERAPAMIL ER [Suspect]
     Active Substance: VERAPAMIL HYDROCHLORIDE
     Indication: HYPERTENSION
     Dosage: ?          QUANTITY:90 TABLET(S);?
     Route: 048
     Dates: start: 20170422, end: 20170422
  13. VENTOLIN ALBUTEROL INHALER [Concomitant]
  14. SINGULAIR [Concomitant]
     Active Substance: MONTELUKAST SODIUM
  15. METFORMIN [Concomitant]
     Active Substance: METFORMIN HYDROCHLORIDE
  16. VITAMIN D3 [Concomitant]
     Active Substance: CHOLECALCIFEROL
  17. VERAPAMIL ER [Concomitant]
     Active Substance: VERAPAMIL HYDROCHLORIDE
  18. LISINOPRIL. [Concomitant]
     Active Substance: LISINOPRIL
  19. NEURONTIN [Concomitant]
     Active Substance: GABAPENTIN
  20. TRULICITY INJ. [Concomitant]
  21. CARDIAC NITROSTAT [Concomitant]
  22. MOTRIN [Concomitant]
     Active Substance: IBUPROFEN
  23. ALLEGRA [Concomitant]
     Active Substance: FEXOFENADINE HYDROCHLORIDE
  24. CROMOLYN SOD [Concomitant]
  25. HCTZ [Concomitant]
     Active Substance: HYDROCHLOROTHIAZIDE
  26. BUDESONIDE. [Concomitant]
     Active Substance: BUDESONIDE
  27. NORCO [Concomitant]
     Active Substance: ACETAMINOPHEN\HYDROCODONE BITARTRATE
  28. ZYRTEC [Concomitant]
     Active Substance: CETIRIZINE HYDROCHLORIDE
  29. PEPCID [Concomitant]
     Active Substance: FAMOTIDINE

REACTIONS (1)
  - Hypersensitivity [None]

NARRATIVE: CASE EVENT DATE: 20170422
